FAERS Safety Report 17598597 (Version 1)
Quarter: 2020Q1

REPORT INFORMATION
  Report Type: Report from Study
  Country: US (occurrence: US)
  Receive Date: 20200330
  Receipt Date: 20200330
  Transmission Date: 20200409
  Serious: No
  Sender: FDA-Public Use
  Company Number: NVSC2020US082185

PATIENT
  Age: 58 Year
  Sex: Female

DRUGS (1)
  1. COSENTYX [Suspect]
     Active Substance: SECUKINUMAB
     Indication: PSORIATIC ARTHROPATHY
     Dosage: UNK
     Route: 065

REACTIONS (7)
  - Feeling cold [Unknown]
  - Arthralgia [Unknown]
  - Iritis [Unknown]
  - Pain in extremity [Unknown]
  - Headache [Unknown]
  - Eye pain [Unknown]
  - Drug ineffective [Unknown]
